FAERS Safety Report 14314557 (Version 1)
Quarter: 2017Q4

REPORT INFORMATION
  Report Type: Spontaneous
  Country: US (occurrence: US)
  Receive Date: 20171221
  Receipt Date: 20171221
  Transmission Date: 20180321
  Serious: No
  Sender: FDA-Public Use
  Company Number: None

PATIENT
  Age: 61 Year
  Sex: Female
  Weight: 106.2 kg

DRUGS (12)
  1. BUMETANIDE. [Concomitant]
     Active Substance: BUMETANIDE
  2. PROBIOTICS [Concomitant]
     Active Substance: PROBIOTICS NOS
  3. VITAMIN D3 [Concomitant]
     Active Substance: CHOLECALCIFEROL
  4. IRBESARTIN [Concomitant]
  5. OMEPRAZOLE. [Concomitant]
     Active Substance: OMEPRAZOLE
  6. CALTRATE [Concomitant]
     Active Substance: CALCIUM CARBONATE
  7. JARDIANCE [Suspect]
     Active Substance: EMPAGLIFLOZIN
     Indication: GLYCOSYLATED HAEMOGLOBIN INCREASED
     Dosage: ?          QUANTITY:7 TABLET(S);?
     Route: 048
     Dates: start: 20171214, end: 20171220
  8. FISH OIL [Concomitant]
     Active Substance: FISH OIL
  9. RANIDINE [Concomitant]
  10. NOVOLOG [Concomitant]
     Active Substance: INSULIN ASPART
  11. LEVOTHYROXIN [Concomitant]
     Active Substance: LEVOTHYROXINE
  12. CENTRUM MULTI VITAMIN [Concomitant]

REACTIONS (1)
  - Vulvovaginal mycotic infection [None]

NARRATIVE: CASE EVENT DATE: 20171220
